FAERS Safety Report 13500244 (Version 2)
Quarter: 2017Q2

REPORT INFORMATION
  Report Type: Report from Study
  Country: None (occurrence: US)
  Receive Date: 20170501
  Receipt Date: 20170508
  Transmission Date: 20170830
  Serious: Yes (Hospitalization)
  Sender: FDA-Public Use
  Company Number: US-ABBVIE-17P-163-1958172-00

PATIENT
  Age: 48 Year
  Sex: Male

DRUGS (4)
  1. VIEKIRA PAK [Suspect]
     Active Substance: DASABUVIR\OMBITASVIR\PARITAPREVIR\RITONAVIR
     Indication: HEPATITIS C
     Route: 048
     Dates: start: 20170322, end: 20170420
  2. VIEKIRA PAK [Suspect]
     Active Substance: DASABUVIR\OMBITASVIR\PARITAPREVIR\RITONAVIR
     Route: 048
     Dates: start: 20170424
  3. MODERIBA [Suspect]
     Active Substance: RIBAVIRIN
     Indication: HEPATITIS C
     Dosage: 200 MG 3 TABLETS IN THE AM AND 2 TABLETS IN THE PM
     Route: 048
     Dates: start: 20170322, end: 20170420
  4. MODERIBA [Suspect]
     Active Substance: RIBAVIRIN
     Dosage: 200 MG 3 TABLETS IN THE AM AND 2 TABLETS IN THE PM
     Route: 048
     Dates: start: 20170424

REACTIONS (4)
  - Drug dose omission [Recovering/Resolving]
  - Blood glucose increased [Recovering/Resolving]
  - Gait disturbance [Recovering/Resolving]
  - Blood potassium increased [Recovering/Resolving]

NARRATIVE: CASE EVENT DATE: 20170420
